FAERS Safety Report 8045407-9 (Version None)
Quarter: 2012Q1

REPORT INFORMATION
  Report Type: 
  Country: None (occurrence: None)
  Receive Date: 20120113
  Receipt Date: 20120106
  Transmission Date: 20120608
  Serious: Yes (Death, Hospitalization)
  Sender: FDA-Public Use
  Company Number: US-AMGEN-USASP2012001025

PATIENT
  Age: 83 Year
  Sex: Female

DRUGS (1)
  1. ENBREL [Suspect]
     Indication: RHEUMATOID ARTHRITIS
     Dosage: 25 MG, 2 TIMES/WK
     Dates: start: 20000223, end: 20110401

REACTIONS (11)
  - AORTIC ANEURYSM [None]
  - GASTROENTERITIS VIRAL [None]
  - ANAPHYLACTIC REACTION [None]
  - EYE IRRITATION [None]
  - FALL [None]
  - MALAISE [None]
  - MOBILITY DECREASED [None]
  - EYELID BLEEDING [None]
  - ARTHRITIS [None]
  - EYE PRURITUS [None]
  - PAIN [None]
